FAERS Safety Report 14279574 (Version 2)
Quarter: 2018Q1

REPORT INFORMATION
  Report Type: Spontaneous
  Country: CZ (occurrence: CZ)
  Receive Date: 20171212
  Receipt Date: 20180105
  Transmission Date: 20180508
  Serious: Yes (Other)
  Sender: FDA-Public Use
  Company Number: CZ-TEVA-2017-CZ-829246

PATIENT
  Sex: Male

DRUGS (2)
  1. DOCETAXEL. [Suspect]
     Active Substance: DOCETAXEL
     Route: 058
  2. GOSERELINE [Concomitant]
     Active Substance: GOSERELIN
     Route: 058

REACTIONS (2)
  - Toxicity to various agents [Unknown]
  - Adverse event [Unknown]
